FAERS Safety Report 5722207-3 (Version None)
Quarter: 2008Q2

REPORT INFORMATION
  Report Type: 
  Country: None (occurrence: None)
  Receive Date: 20080425
  Receipt Date: 20080417
  Transmission Date: 20081010
  Serious: Yes (Hospitalization)
  Sender: FDA-Public Use
  Company Number: 163-20785-08031036

PATIENT
  Age: 71 Year
  Sex: Female

DRUGS (2)
  1. THALOMID [Suspect]
     Indication: AMYLOIDOSIS
     Dosage: 200 MG, 1 IN 1 D, ORAL; 100-150 MG, DAILY, ORAL
     Route: 048
     Dates: start: 20070518, end: 20071101
  2. THALOMID [Suspect]
     Indication: AMYLOIDOSIS
     Dosage: 200 MG, 1 IN 1 D, ORAL; 100-150 MG, DAILY, ORAL
     Route: 048
     Dates: start: 20071101, end: 20080201

REACTIONS (1)
  - TREATMENT FAILURE [None]
